FAERS Safety Report 8471534-8 (Version None)
Quarter: 2012Q2

REPORT INFORMATION
  Report Type: 
  Country: None (occurrence: None)
  Receive Date: 20120627
  Receipt Date: 20120621
  Transmission Date: 20120825
  Serious: Yes (Death, Life-Threatening, Hospitalization, Disabling)
  Sender: FDA-Public Use
  Company Number: JP-TEVA-2011001806

PATIENT
  Sex: Female
  Weight: 57.5 kg

DRUGS (9)
  1. THEOPHYLLINE [Concomitant]
     Dates: end: 20110618
  2. ACYCLOVIR [Concomitant]
     Dates: end: 20110228
  3. ALLOPURINOL [Concomitant]
     Dates: start: 20110121
  4. SULFAMETHOXAZOLE AND TRIMETHOPRIM [Concomitant]
     Dates: end: 20110618
  5. AMBROXOL HYDROCHLORIDE [Concomitant]
     Dates: end: 20110618
  6. PREDNISOLONE [Concomitant]
     Dates: end: 20110524
  7. ERYTHROMYCIN ETHYLSUCCINATE [Concomitant]
     Dates: end: 20110618
  8. TREANDA [Suspect]
     Indication: NON-HODGKIN'S LYMPHOMA RECURRENT
     Route: 042
     Dates: start: 20110112, end: 20110113
  9. RITUXIMAB [Concomitant]
     Dates: start: 20110111, end: 20110111

REACTIONS (6)
  - LOBAR PNEUMONIA [None]
  - INTERSTITIAL LUNG DISEASE [None]
  - HYPERURICAEMIA [None]
  - LYMPHOCYTE COUNT DECREASED [None]
  - NEUTROPHIL COUNT DECREASED [None]
  - ANAEMIA [None]
